FAERS Safety Report 18227069 (Version 5)
Quarter: 2021Q3

REPORT INFORMATION
  Report Type: Spontaneous
  Country: US (occurrence: US)
  Receive Date: 20200903
  Receipt Date: 20210921
  Transmission Date: 20211014
  Serious: Yes (Other)
  Sender: FDA-Public Use
  Company Number: US-PFIZER INC-2020341420

PATIENT
  Age: 62 Year
  Sex: Female

DRUGS (2)
  1. IBRANCE [Suspect]
     Active Substance: PALBOCICLIB
     Indication: BREAST CANCER FEMALE
     Dosage: 125 MG
     Dates: start: 20200811
  2. IBRANCE [Suspect]
     Active Substance: PALBOCICLIB
     Dosage: 125 MG, CYCLIC (125 MG QD (EVERY DAY) X 21 DAYS Q (EVERY) 28 DAYS)
     Dates: start: 20200814

REACTIONS (10)
  - Dyspnoea [Unknown]
  - Cardiac disorder [Unknown]
  - Productive cough [Unknown]
  - Lymphoedema [Unknown]
  - Blood count abnormal [Unknown]
  - Muscle spasms [Not Recovered/Not Resolved]
  - Dysphagia [Unknown]
  - White blood cell count decreased [Unknown]
  - Pleural effusion [Unknown]
  - Gastrointestinal oedema [Unknown]

NARRATIVE: CASE EVENT DATE: 20210801
